FAERS Safety Report 17835477 (Version 2)
Quarter: 2020Q3

REPORT INFORMATION
  Report Type: Spontaneous
  Country: PL (occurrence: PL)
  Receive Date: 20200528
  Receipt Date: 20200709
  Transmission Date: 20201103
  Serious: Yes (Hospitalization, Other)
  Sender: FDA-Public Use
  Company Number: PL-AMGEN-POLSP2020080935

PATIENT
  Age: 75 Year
  Sex: Male

DRUGS (18)
  1. ZOLEDRONIC ACID. [Concomitant]
     Active Substance: ZOLEDRONIC ACID
  2. ABIRATERONE. [Concomitant]
     Active Substance: ABIRATERONE ACETATE
  3. GEMCITABINE. [Concomitant]
     Active Substance: GEMCITABINE
     Dosage: 1000 MILLIGRAM/SQ. METER, D I I D8 EVERY 21 DAYS
  4. FOLIC ACID. [Concomitant]
     Active Substance: FOLIC ACID
     Dosage: 5 MILLIGRAM, QD
  5. LEUPRORELIN [Concomitant]
     Active Substance: LEUPROLIDE ACETATE
  6. DOXAZOSINE [DOXAZOSIN] [Concomitant]
     Active Substance: DOXAZOSIN MESYLATE
     Dosage: 2 MILLIGRAM, QD
  7. FERROUS ASCORBATE [Concomitant]
     Active Substance: FERROUS ASCORBATE
     Dosage: UNK UNK, QD
  8. PREDNIZON [Concomitant]
     Active Substance: PREDNISONE
  9. ARANESP [Suspect]
     Active Substance: DARBEPOETIN ALFA
     Dosage: UNK
     Route: 065
     Dates: start: 2019
  10. CYKLOFOSFAMID [Concomitant]
     Active Substance: CYCLOPHOSPHAMIDE
  11. CISPLATINE [Concomitant]
     Active Substance: CISPLATIN
     Dosage: 25 MILLIGRAM/SQ. METER, D I I D8 EVERY 21 DAYS
  12. DOCETAXEL. [Concomitant]
     Active Substance: DOCETAXEL
     Dosage: 50 MILLIGRAM/SQ. METER, Q2WK
  13. ENZALUTAMIDE [Concomitant]
     Active Substance: ENZALUTAMIDE
  14. ALPRAZOLAM. [Concomitant]
     Active Substance: ALPRAZOLAM
     Dosage: 0.25 MILLIGRAM
  15. DOCETAXEL. [Concomitant]
     Active Substance: DOCETAXEL
     Dosage: 75 MILLIGRAM/SQ. METER, Q3WK
  16. ARANESP [Suspect]
     Active Substance: DARBEPOETIN ALFA
     Indication: ANAEMIA
     Dosage: UNK
     Route: 065
     Dates: start: 2014, end: 2014
  17. INDAPAMID [Concomitant]
     Active Substance: INDAPAMIDE
     Dosage: 1.5 MILLIGRAM, QD
  18. TAMSULOSIN [Concomitant]
     Active Substance: TAMSULOSIN
     Dosage: 0.4 MILLIGRAM, QD

REACTIONS (3)
  - Prostate cancer metastatic [Unknown]
  - Osteonecrosis of jaw [Unknown]
  - Anaemia [Recovering/Resolving]

NARRATIVE: CASE EVENT DATE: 201503
